FAERS Safety Report 20336553 (Version 2)
Quarter: 2022Q1

REPORT INFORMATION
  Report Type: Spontaneous
  Country: KR (occurrence: KR)
  Receive Date: 20220114
  Receipt Date: 20220131
  Transmission Date: 20220423
  Serious: Yes (Death)
  Sender: FDA-Public Use
  Company Number: KR-ALXN-A202114232

PATIENT
  Age: 2 Year
  Weight: 15 kg

DRUGS (2)
  1. SOLIRIS [Suspect]
     Active Substance: ECULIZUMAB
     Indication: Thrombotic microangiopathy
     Dosage: 600 MG, (2 VIALS)
     Route: 065
     Dates: start: 20211223
  2. SOLIRIS [Suspect]
     Active Substance: ECULIZUMAB
     Indication: Off label use

REACTIONS (2)
  - Venoocclusive disease [Fatal]
  - Off label use [Unknown]

NARRATIVE: CASE EVENT DATE: 20211223
